FAERS Safety Report 4993392-6 (Version None)
Quarter: 2006Q2

REPORT INFORMATION
  Report Type: 
  Country: None (occurrence: None)
  Receive Date: 20060504
  Receipt Date: 20060504
  Transmission Date: 20061013
  Serious: Yes (Hospitalization)
  Sender: FDA-Public Use
  Company Number: None

PATIENT
  Age: 59 Year
  Sex: Female
  Weight: 28.0777 kg

DRUGS (13)
  1. FLUDARABINE [Suspect]
     Indication: CHEMOTHERAPY
     Dosage: 57MG/QD/IV
     Route: 042
     Dates: start: 20060125, end: 20060129
  2. CYTOXAN [Suspect]
     Indication: MULTIPLE MYELOMA
     Dosage: 1.62G/QD/IV
     Route: 042
     Dates: start: 20060130, end: 20060131
  3. UMBILICAL CORD BLOOD [Suspect]
  4. NORVASC [Concomitant]
  5. ACTIGALL [Concomitant]
  6. NEXIUM [Concomitant]
  7. ACYCLOVIR [Concomitant]
  8. LIPITOR [Concomitant]
  9. GLIPIZIDE [Concomitant]
  10. HYDROCHLOROTHIAZIDE [Concomitant]
  11. DURICEF [Concomitant]
  12. MAGNESIUM OXIDE [Concomitant]
  13. K-DUR 10 [Concomitant]

REACTIONS (3)
  - MULTIPLE MYELOMA [None]
  - PANCREATITIS [None]
  - RECURRENT CANCER [None]
